FAERS Safety Report 6182366-8 (Version None)
Quarter: 2009Q2

REPORT INFORMATION
  Report Type: 
  Country: None (occurrence: None)
  Receive Date: 20090507
  Receipt Date: 20090504
  Transmission Date: 20091009
  Serious: Yes (Hospitalization)
  Sender: FDA-Public Use
  Company Number: DE-JNJFOC-20090500944

PATIENT
  Sex: Male

DRUGS (9)
  1. LIVOCAB [Suspect]
     Indication: SUICIDE ATTEMPT
     Route: 048
  2. DOLORMIN [Suspect]
     Indication: SUICIDE ATTEMPT
     Route: 048
  3. LOPERAMIDE HCL [Suspect]
     Indication: SUICIDE ATTEMPT
     Route: 048
  4. LORATADINE [Suspect]
     Indication: SUICIDE ATTEMPT
     Route: 048
  5. SIMVASTATIN [Suspect]
     Indication: SUICIDE ATTEMPT
     Route: 048
  6. AMOXICILLIN [Suspect]
     Indication: SUICIDE ATTEMPT
     Route: 048
  7. ACETYLSALICYLIC ACID [Suspect]
     Indication: SUICIDE ATTEMPT
     Route: 048
  8. NOVALGINE [Suspect]
     Indication: SUICIDE ATTEMPT
     Route: 048
  9. SEDACUR [Suspect]
     Indication: SUICIDE ATTEMPT
     Route: 048

REACTIONS (4)
  - HAEMATEMESIS [None]
  - INCORRECT ROUTE OF DRUG ADMINISTRATION [None]
  - MULTIPLE DRUG OVERDOSE [None]
  - SUICIDE ATTEMPT [None]
